FAERS Safety Report 5844611-5 (Version None)
Quarter: 2008Q3

REPORT INFORMATION
  Report Type: 
  Country: None (occurrence: None)
  Receive Date: 20080812
  Receipt Date: 20080729
  Transmission Date: 20090109
  Serious: Yes (Hospitalization, Other)
  Sender: FDA-Public Use
  Company Number: 1000000417

PATIENT
  Age: 32 Year
  Sex: Female
  Weight: 53.5 kg

DRUGS (3)
  1. CITALOPRAM (CITALOPRAM HYDROBROMIDE) (20 MILLIGRAM, TABLETS) [Suspect]
     Indication: ANXIETY
     Dosage: 20 MG (20 MG, 1 IN 1 D), ORAL, 30 MG (30 MG, 1 IN 1 D), ORAL
     Route: 048
     Dates: start: 20080712, end: 20080722
  2. CITALOPRAM (CITALOPRAM HYDROBROMIDE) (20 MILLIGRAM, TABLETS) [Suspect]
     Indication: ANXIETY
     Dosage: 20 MG (20 MG, 1 IN 1 D), ORAL, 30 MG (30 MG, 1 IN 1 D), ORAL
     Route: 048
     Dates: start: 20080723
  3. ATIVAN [Concomitant]
     Indication: ANXIETY

REACTIONS (8)
  - ANOREXIA [None]
  - ANXIETY [None]
  - CRYING [None]
  - DEPRESSED MOOD [None]
  - EMOTIONAL DISORDER [None]
  - FATIGUE [None]
  - INSOMNIA [None]
  - WEIGHT DECREASED [None]
